FAERS Safety Report 6465509-8 (Version None)
Quarter: 2009Q4

REPORT INFORMATION
  Report Type: 
  Country: None (occurrence: None)
  Receive Date: 20091124
  Receipt Date: 20091104
  Transmission Date: 20100525
  Serious: Yes (Hospitalization)
  Sender: FDA-Public Use
  Company Number: 20090500

PATIENT
  Age: 79 Year
  Sex: Male
  Weight: 65.7716 kg

DRUGS (2)
  1. VENOFER [Suspect]
     Indication: IRON DEFICIENCY ANAEMIA
     Dosage: 300 MG IN 250 ML NS OVER 2 HRS INTRAVENOUS
     Route: 042
     Dates: start: 20091026, end: 20091026
  2. VENOFER [Suspect]
     Indication: IRON DEFICIENCY ANAEMIA
     Dosage: 300 MG IN 250 ML NS OVER 2 HRS INTRAVENOUS
     Route: 042
     Dates: start: 20091026, end: 20091026

REACTIONS (2)
  - LOSS OF CONSCIOUSNESS [None]
  - VOMITING PROJECTILE [None]
